FAERS Safety Report 8043418-0 (Version None)
Quarter: 2012Q1

REPORT INFORMATION
  Report Type: 
  Country: None (occurrence: None)
  Receive Date: 20120112
  Receipt Date: 20120106
  Transmission Date: 20120608
  Serious: Yes (Other)
  Sender: FDA-Public Use
  Company Number: PHHY2012KR001308

PATIENT
  Age: 26 Year
  Sex: Female

DRUGS (4)
  1. ISONIAZID [Suspect]
     Indication: TUBERCULOUS PLEURISY
     Dosage: 300 MG, UNK
  2. PYRAZINAMIDE [Suspect]
     Indication: TUBERCULOUS PLEURISY
     Dosage: 1500 MG, UNK
  3. RIFAMPICIN [Suspect]
     Indication: TUBERCULOUS PLEURISY
     Dosage: 600 MG, UNK
  4. ETHAMBUTOL HYDROCHLORIDE [Suspect]
     Indication: TUBERCULOUS PLEURISY
     Dosage: 1200 MG, UNK

REACTIONS (7)
  - PARADOXICAL DRUG REACTION [None]
  - GASTROINTESTINAL SOUNDS ABNORMAL [None]
  - PLEURAL EFFUSION [None]
  - PERITONEAL TUBERCULOSIS [None]
  - ABDOMINAL DISTENSION [None]
  - ABDOMINAL TENDERNESS [None]
  - ABDOMINAL PAIN [None]
